FAERS Safety Report 7114515-9 (Version None)
Quarter: 2010Q4

REPORT INFORMATION
  Report Type: 
  Country: None (occurrence: None)
  Receive Date: 20101119
  Receipt Date: 20101111
  Transmission Date: 20110411
  Serious: Yes (Other)
  Sender: FDA-Public Use
  Company Number: US-AMGEN-QUU403827

PATIENT

DRUGS (5)
  1. NPLATE [Suspect]
     Indication: IDIOPATHIC THROMBOCYTOPENIC PURPURA
     Dosage: 330 A?G, UNK
     Dates: start: 20081222, end: 20091110
  2. NPLATE [Suspect]
     Dates: start: 20090126, end: 20091125
  3. CORTICOSTEROID NOS [Concomitant]
  4. IMMU-G [Concomitant]
  5. AZATHIOPRINE [Concomitant]

REACTIONS (4)
  - HAEMORRHAGE [None]
  - HYPERSENSITIVITY [None]
  - THROMBOCYTOPENIA [None]
  - URTICARIA [None]
